FAERS Safety Report 21938112 (Version 4)
Quarter: 2023Q1

REPORT INFORMATION
  Report Type: Report from Study
  Country: US (occurrence: US)
  Receive Date: 20230201
  Receipt Date: 20230224
  Transmission Date: 20230418
  Serious: Yes (Other)
  Sender: FDA-Public Use
  Company Number: US-PFIZER INC-202300046404

PATIENT
  Age: 87 Year
  Sex: Female
  Weight: 82.8 kg

DRUGS (4)
  1. INLYTA [Suspect]
     Active Substance: AXITINIB
     Indication: Renal cancer
     Dosage: 1 TABLET TWICE A DAY
     Route: 048
     Dates: end: 20230212
  2. ATENOLOL [Concomitant]
     Active Substance: ATENOLOL
     Dosage: UNK
  3. TRAZODONE [Concomitant]
     Active Substance: TRAZODONE HYDROCHLORIDE
     Dosage: UNK
  4. LOSARTAN [Concomitant]
     Active Substance: LOSARTAN
     Dosage: UNK

REACTIONS (4)
  - Chest pain [Recovered/Resolved]
  - Somnolence [Unknown]
  - Fatigue [Unknown]
  - Dysphonia [Unknown]

NARRATIVE: CASE EVENT DATE: 20230212
